FAERS Safety Report 4767758-3 (Version None)
Quarter: 2005Q3

REPORT INFORMATION
  Report Type: 
  Country: None (occurrence: None)
  Receive Date: 20050912
  Receipt Date: 20050801
  Transmission Date: 20060218
  Serious: Yes (Hospitalization)
  Sender: FDA-Public Use
  Company Number: 2005110310

PATIENT
  Age: 54 Year
  Sex: Male
  Weight: 58 kg

DRUGS (6)
  1. NEURONTIN [Suspect]
     Indication: ILL-DEFINED DISORDER
     Dosage: 300 MG (300 MG, 1 IN 1 D), ORAL
     Route: 048
     Dates: start: 20050404
  2. NICOTINAMIDE [Concomitant]
  3. ZOPICLONE (ZOPICLONE) [Concomitant]
  4. MEPROBAMATE [Concomitant]
  5. SPECIALFOLDINE (FOLIC ACID) [Concomitant]
  6. VITAMIN B1 AND B6 (PYRIDOXINE, THIAMINE) [Concomitant]

REACTIONS (3)
  - DRUG INEFFECTIVE [None]
  - ORTHOSTATIC HYPOTENSION [None]
  - VERTIGO [None]
